FAERS Safety Report 23880929 (Version 1)
Quarter: 2024Q2

REPORT INFORMATION
  Report Type: Spontaneous
  Country: US (occurrence: US)
  Receive Date: 20240521
  Receipt Date: 20240521
  Transmission Date: 20240716
  Serious: No
  Sender: FDA-Public Use
  Company Number: US-PAIPHARMA-2023-US-043328

PATIENT
  Age: 53 Year
  Sex: Female

DRUGS (1)
  1. ACETAMINOPHEN\HYDROCODONE BITARTRATE [Suspect]
     Active Substance: ACETAMINOPHEN\HYDROCODONE BITARTRATE
     Indication: Pain
     Dosage: 15 ML BY MOUTH, EVERY 8 HOURS
     Route: 048

REACTIONS (1)
  - Pruritus [Recovered/Resolved]
